FAERS Safety Report 21896154 (Version 1)
Quarter: 2023Q1

REPORT INFORMATION
  Report Type: Spontaneous
  Country: IT (occurrence: IT)
  Receive Date: 20230123
  Receipt Date: 20230123
  Transmission Date: 20230417
  Serious: Yes (Other)
  Sender: FDA-Public Use
  Company Number: IT-SA-SAC20230120000873

PATIENT
  Age: 40 Year
  Sex: Male

DRUGS (1)
  1. DUPIXENT [Suspect]
     Active Substance: DUPILUMAB
     Indication: Dermatitis atopic
     Dosage: 300 MG, QOW
     Route: 058
     Dates: start: 20221021

REACTIONS (3)
  - Pancreatitis [Recovered/Resolved]
  - Lipase increased [Recovered/Resolved]
  - Transaminases increased [Recovered/Resolved]

NARRATIVE: CASE EVENT DATE: 20221231
